FAERS Safety Report 7867584-2 (Version None)
Quarter: 2011Q4

REPORT INFORMATION
  Report Type: 
  Country: None (occurrence: None)
  Receive Date: 20111028
  Receipt Date: 20111021
  Transmission Date: 20120403
  Serious: Yes (Hospitalization, Other)
  Sender: FDA-Public Use
  Company Number: FR-VERTEX PHARMACEUTICALS INC.-AE-2011-000213

PATIENT
  Sex: Male
  Weight: 73 kg

DRUGS (5)
  1. LEVOTHYROXINE SODIUM [Concomitant]
     Indication: HYPOTHYROIDISM
     Route: 048
  2. VX-950 [Suspect]
     Indication: HEPATITIS C
     Route: 048
     Dates: start: 20110220, end: 20110513
  3. PEGASYS [Concomitant]
     Indication: HEPATITIS C
     Route: 058
     Dates: start: 20110220
  4. NEORECORMON [Concomitant]
     Indication: ANAEMIA
     Route: 058
     Dates: start: 20110323, end: 20110504
  5. RIBAVIRIN [Concomitant]
     Indication: HEPATITIS C
     Route: 048
     Dates: start: 20110220

REACTIONS (3)
  - RASH [None]
  - TOXIC SKIN ERUPTION [None]
  - STAPHYLOCOCCAL INFECTION [None]
